FAERS Safety Report 18087396 (Version 3)
Quarter: 2020Q3

REPORT INFORMATION
  Report Type: Spontaneous
  Country: US (occurrence: US)
  Receive Date: 20200729
  Receipt Date: 20200806
  Transmission Date: 20201103
  Serious: Yes (Death, Hospitalization)
  Sender: FDA-Public Use
  Company Number: US-PFIZER INC-2020098688

PATIENT
  Age: 80 Year
  Sex: Female
  Weight: 58.5 kg

DRUGS (3)
  1. RETACRIT [Suspect]
     Active Substance: EPOETIN ALFA-EPBX
     Dosage: 40000 IU (ONLY ONE DOSE GIVEN)
     Route: 058
     Dates: start: 20200319
  2. RETACRIT [Suspect]
     Active Substance: EPOETIN ALFA-EPBX
     Dosage: 10000 IU, WEEKLY
     Route: 042
  3. RETACRIT [Suspect]
     Active Substance: EPOETIN ALFA-EPBX
     Indication: NEPHROGENIC ANAEMIA
     Dosage: 40000 IU, WEEKLY ( WEEKLY FOR 52 WEEKS)
     Route: 058

REACTIONS (3)
  - Vasculitis [Fatal]
  - Off label use [Unknown]
  - Product use issue [Unknown]
